FAERS Safety Report 10418082 (Version 1)
Quarter: 2014Q3

REPORT INFORMATION
  Report Type: Spontaneous
  Country: US (occurrence: None)
  Receive Date: 20140827
  Receipt Date: 20140827
  Transmission Date: 20150326
  Serious: Yes (Other)
  Sender: FDA-Public Use
  Company Number: 2009S1006421

PATIENT
  Age: 60 Year
  Sex: Female

DRUGS (11)
  1. PHOSPHO-SODA [Suspect]
     Active Substance: SODIUM PHOSPHATE, DIBASIC\SODIUM PHOSPHATE, MONOBASIC
     Indication: COLONOSCOPY
     Route: 048
     Dates: start: 20060109
  2. EFFEXOR (VENLAFAXINE HYDROCHLORIDE) [Concomitant]
  3. CLONIDINE (CLONIDINE) [Concomitant]
     Active Substance: CLONIDINE
  4. VIOKASE (PANCREATIN) [Concomitant]
  5. TOPROL XL [Concomitant]
     Active Substance: METOPROLOL SUCCINATE
  6. PREVACID [Concomitant]
     Active Substance: LANSOPRAZOLE
  7. NORVASC [Concomitant]
     Active Substance: AMLODIPINE BESYLATE
  8. COLAZAL (BALSALAZIDE SODIUM) [Concomitant]
  9. LASIX [Concomitant]
     Active Substance: FUROSEMIDE
  10. NITROGLYCERIN (GLYCERYL TRINITRATE) [Concomitant]
  11. LIPITOR [Concomitant]
     Active Substance: ATORVASTATIN CALCIUM

REACTIONS (32)
  - Anxiety [None]
  - Renal atrophy [None]
  - Renal cyst [None]
  - Renal tubular necrosis [None]
  - Clostridium difficile colitis [None]
  - Haematuria [None]
  - Pyuria [None]
  - Renal artery occlusion [None]
  - Near drowning [None]
  - Necrosis ischaemic [None]
  - Inflammatory bowel disease [None]
  - Pseudopolyposis [None]
  - Urinary tract infection [None]
  - Blood potassium decreased [None]
  - Insomnia [None]
  - Treatment noncompliance [None]
  - Urinary retention [None]
  - Dysarthria [None]
  - Mental status changes [None]
  - Renal failure chronic [None]
  - Aortic occlusion [None]
  - Aortic arteriosclerosis [None]
  - Gait disturbance [None]
  - Renal mass [None]
  - Condition aggravated [None]
  - Haemorrhagic anaemia [None]
  - Aortic aneurysm [None]
  - Collateral circulation [None]
  - Coeliac artery stenosis [None]
  - Mesenteric arterial occlusion [None]
  - Colitis ulcerative [None]
  - Pulmonary embolism [None]
